FAERS Safety Report 23627563 (Version 1)
Quarter: 2024Q1

REPORT INFORMATION
  Report Type: Spontaneous
  Country: AU (occurrence: AU)
  Receive Date: 20240313
  Receipt Date: 20240313
  Transmission Date: 20240409
  Serious: Yes (Hospitalization, Other)
  Sender: FDA-Public Use
  Company Number: AU-TAKEDA-2024TUS022110

PATIENT
  Age: 48 Year
  Sex: Female

DRUGS (9)
  1. PONATINIB [Suspect]
     Active Substance: PONATINIB
     Indication: Product used for unknown indication
     Dosage: UNK
     Route: 065
     Dates: start: 201708
  2. PONATINIB [Suspect]
     Active Substance: PONATINIB
     Dosage: 30 MILLIGRAM
     Route: 065
     Dates: start: 201805
  3. PONATINIB [Suspect]
     Active Substance: PONATINIB
     Dosage: 15 MILLIGRAM
     Route: 065
  4. IMATINIB [Suspect]
     Active Substance: IMATINIB
     Indication: Product used for unknown indication
     Dosage: 400 MILLIGRAM
     Route: 065
     Dates: start: 2009
  5. IMATINIB [Suspect]
     Active Substance: IMATINIB
     Dosage: UNK
     Route: 065
     Dates: start: 201111
  6. NILOTINIB [Suspect]
     Active Substance: NILOTINIB
     Indication: Product used for unknown indication
     Dosage: UNK
     Route: 065
     Dates: start: 201406
  7. ASCIMINIB [Suspect]
     Active Substance: ASCIMINIB
     Indication: Product used for unknown indication
     Dosage: 40 MILLIGRAM, BID
     Route: 065
  8. DASATINIB [Suspect]
     Active Substance: DASATINIB
     Indication: Product used for unknown indication
     Dosage: 100 MILLIGRAM, QD
     Route: 065
     Dates: start: 201412
  9. DASATINIB [Suspect]
     Active Substance: DASATINIB
     Dosage: 50 MILLIGRAM
     Route: 065

REACTIONS (10)
  - Cerebral vasoconstriction [Unknown]
  - Pancreatitis [Unknown]
  - Arrhythmia [Unknown]
  - Acute myocardial infarction [Unknown]
  - Transient ischaemic attack [Unknown]
  - Supraventricular tachycardia [Unknown]
  - Lipase increased [Unknown]
  - Drug intolerance [Unknown]
  - Treatment failure [Unknown]
  - Treatment noncompliance [Unknown]
